FAERS Safety Report 12054376 (Version 3)
Quarter: 2016Q2

REPORT INFORMATION
  Report Type: Report from Study
  Country: US (occurrence: US)
  Receive Date: 20160209
  Receipt Date: 20160506
  Transmission Date: 20160815
  Serious: No
  Sender: FDA-Public Use
  Company Number: PHEH2016US002771

PATIENT
  Age: 45 Year
  Sex: Female

DRUGS (2)
  1. GILENYA [Suspect]
     Active Substance: FINGOLIMOD HYDROCHLORIDE
     Indication: MULTIPLE SCLEROSIS
     Dosage: 0.5 MG, QD
     Route: 048
     Dates: start: 20160202
  2. TYLENOL [Suspect]
     Active Substance: ACETAMINOPHEN
     Indication: PAIN
     Dosage: 325 MG, UNK
     Route: 065

REACTIONS (17)
  - Myalgia [Recovered/Resolved]
  - Paraesthesia [Recovered/Resolved]
  - Stress [Unknown]
  - Arthralgia [Unknown]
  - Muscle spasms [Unknown]
  - Hypoaesthesia [Recovered/Resolved]
  - Muscle tightness [Unknown]
  - Cognitive disorder [Unknown]
  - Burning sensation [Unknown]
  - Limb discomfort [Unknown]
  - Musculoskeletal stiffness [Unknown]
  - Apathy [Unknown]
  - Insomnia [Unknown]
  - Anxiety [Unknown]
  - Fatigue [Unknown]
  - Visual acuity reduced [Unknown]
  - Memory impairment [Unknown]

NARRATIVE: CASE EVENT DATE: 20160202
